FAERS Safety Report 17900864 (Version 2)
Quarter: 2020Q3

REPORT INFORMATION
  Report Type: Spontaneous
  Country: US (occurrence: US)
  Receive Date: 20200616
  Receipt Date: 20200721
  Transmission Date: 20201103
  Serious: No
  Sender: FDA-Public Use
  Company Number: US-SA-2020SA153182

PATIENT

DRUGS (1)
  1. CABLIVI [Suspect]
     Active Substance: CAPLACIZUMAB-YHDP
     Indication: THROMBOTIC MICROANGIOPATHY
     Dosage: 11 MG, QD
     Route: 058
     Dates: start: 20200604

REACTIONS (12)
  - Mean cell volume abnormal [Unknown]
  - Mean platelet volume abnormal [Unknown]
  - ADAMTS13 activity decreased [Unknown]
  - White blood cell count abnormal [Unknown]
  - Haemoglobin abnormal [Unknown]
  - Haematocrit abnormal [Unknown]
  - Mean cell haemoglobin decreased [Unknown]
  - Neutrophil count abnormal [Unknown]
  - Monocyte percentage abnormal [Unknown]
  - Immature granulocyte percentage increased [Unknown]
  - Blood albumin abnormal [Unknown]
  - Immature granulocyte count increased [Unknown]
